FAERS Safety Report 15844336 (Version 2)
Quarter: 2020Q3

REPORT INFORMATION
  Report Type: Spontaneous
  Country: FR (occurrence: FR)
  Receive Date: 20190118
  Receipt Date: 20200905
  Transmission Date: 20201102
  Serious: Yes (Hospitalization, Other)
  Sender: FDA-Public Use
  Company Number: FR-INDIVIOR LIMITED-INDV-117011-2019

PATIENT
  Age: 28 Year
  Sex: Male

DRUGS (4)
  1. BUPRENORPHINE. [Suspect]
     Active Substance: BUPRENORPHINE
     Indication: DRUG USE DISORDER
     Dosage: 16 MILLIGRAM, AS NECESSARY
     Route: 042
     Dates: start: 2013
  2. KETAMINE [Suspect]
     Active Substance: KETAMINE
     Indication: DRUG USE DISORDER
     Dosage: 1 DOSAGE FORM, AS NECESSARY
     Route: 055
     Dates: start: 2018
  3. RITALINE [Suspect]
     Active Substance: METHYLPHENIDATE HYDROCHLORIDE
     Indication: DRUG USE DISORDER
     Dosage: 80 MG, AS NECESSARY
     Route: 042
     Dates: start: 2018
  4. STILNOX [Suspect]
     Active Substance: ZOLPIDEM TARTRATE
     Indication: DRUG USE DISORDER
     Dosage: ONE DOSAGE FORM, AS NECESSARY
     Route: 042
     Dates: start: 2003

REACTIONS (4)
  - Intentional product use issue [Unknown]
  - Dermo-hypodermitis [Recovering/Resolving]
  - Condition aggravated [Recovering/Resolving]
  - Drug use disorder [Not Recovered/Not Resolved]

NARRATIVE: CASE EVENT DATE: 2013
